FAERS Safety Report 15666909 (Version 4)
Quarter: 2018Q4

REPORT INFORMATION
  Report Type: Spontaneous
  Country: TW (occurrence: TW)
  Receive Date: 20181128
  Receipt Date: 20181217
  Transmission Date: 20190205
  Serious: Yes (Death, Hospitalization, Other)
  Sender: FDA-Public Use
  Company Number: TW-PFIZER INC-2018489336

PATIENT
  Age: 88 Year
  Sex: Female

DRUGS (2)
  1. AMIODARONE HCL [Suspect]
     Active Substance: AMIODARONE HYDROCHLORIDE
     Dosage: 400 MG, DAILY (FOR 3 MONTHS)
  2. AMIODARONE HCL [Suspect]
     Active Substance: AMIODARONE HYDROCHLORIDE
     Indication: ATRIAL FLUTTER
     Dosage: 600 MG, DAILY (FOR 2 MONTHS)

REACTIONS (2)
  - Drug-induced liver injury [Fatal]
  - Pulmonary toxicity [Fatal]
